FAERS Safety Report 21434504 (Version 1)
Quarter: 2022Q4

REPORT INFORMATION
  Report Type: Report from Study
  Country: PK (occurrence: PK)
  Receive Date: 20221010
  Receipt Date: 20221010
  Transmission Date: 20230113
  Serious: Yes (Death)
  Sender: FDA-Public Use
  Company Number: PK-NOVARTISPH-NVSC2022PK227188

PATIENT
  Age: 62 Year
  Sex: Female
  Weight: 49 kg

DRUGS (1)
  1. AFINITOR [Suspect]
     Active Substance: EVEROLIMUS
     Indication: Renal cell carcinoma
     Dosage: 10 MG, QD
     Route: 048
     Dates: start: 20210804, end: 20220914

REACTIONS (2)
  - Oedema [Fatal]
  - Tachycardia [Fatal]

NARRATIVE: CASE EVENT DATE: 20220929
